FAERS Safety Report 8042513-X (Version None)
Quarter: 2012Q1

REPORT INFORMATION
  Report Type: 
  Country: None (occurrence: None)
  Receive Date: 20120112
  Receipt Date: 20120105
  Transmission Date: 20120608
  Serious: Yes (Hospitalization)
  Sender: FDA-Public Use
  Company Number: JP-ASTRAZENECA-2012SE01678

PATIENT
  Age: 80 Year
  Sex: Male

DRUGS (8)
  1. VITAMIN K ANTAGONIST [Concomitant]
     Indication: ATRIAL FIBRILLATION
     Route: 065
  2. CANDESARTAN CILEXETIL [Suspect]
     Indication: HYPERTENSION
     Route: 048
     Dates: end: 20111001
  3. LASIX [Suspect]
     Indication: HYPERTENSION
     Route: 048
     Dates: end: 20111001
  4. TAMSULOSIN HCL [Concomitant]
     Indication: BENIGN PROSTATIC HYPERPLASIA
     Route: 065
  5. METFORMIN HCL [Concomitant]
     Indication: TYPE 2 DIABETES MELLITUS
     Route: 065
  6. ANTI-TUMOR NECROSIS FACTOR MONOCLONAL ANTIBODY [Concomitant]
     Indication: RHEUMATOID ARTHRITIS
     Route: 065
  7. DIAMICRON [Concomitant]
     Indication: TYPE 2 DIABETES MELLITUS
     Route: 065
  8. CORDARONE [Suspect]
     Indication: HYPOTHYROIDISM
     Route: 065

REACTIONS (2)
  - HYPOTHYROIDISM [None]
  - RENAL FAILURE ACUTE [None]
